FAERS Safety Report 21574563 (Version 1)
Quarter: 2022Q4

REPORT INFORMATION
  Report Type: Spontaneous
  Country: US (occurrence: None)
  Receive Date: 20221109
  Receipt Date: 20221109
  Transmission Date: 20230112
  Serious: No
  Sender: FDA-Public Use
  Company Number: None

PATIENT
  Age: 85 Year
  Sex: Male
  Weight: 88.9 kg

DRUGS (13)
  1. CAPECITABINE [Suspect]
     Active Substance: CAPECITABINE
     Indication: Colon cancer
     Dosage: FREQUENCY : TWICE A DAY;?
  2. CALCIUM ASCORBATE [Concomitant]
     Active Substance: CALCIUM ASCORBATE
  3. DIGOXIN [Concomitant]
     Active Substance: DIGOXIN
  4. EZETIMIE [Concomitant]
  5. VITAMIN D3 [Concomitant]
     Active Substance: CHOLECALCIFEROL
  6. FISH OIL [Concomitant]
     Active Substance: FISH OIL
  7. PENTOXIFYLLINE [Concomitant]
     Active Substance: PENTOXIFYLLINE
  8. PREDNISONE [Concomitant]
     Active Substance: PREDNISONE
  9. MINERALS\VITAMINS [Concomitant]
     Active Substance: MINERALS\VITAMINS
  10. ROSUVASTATIN [Concomitant]
     Active Substance: ROSUVASTATIN
  11. TYLENOL [Concomitant]
     Active Substance: ACETAMINOPHEN
  12. VITAMIN B12 [Concomitant]
     Active Substance: CYANOCOBALAMIN
  13. WARFARIN [Concomitant]
     Active Substance: WARFARIN

REACTIONS (2)
  - Disease progression [None]
  - Therapy cessation [None]
